FAERS Safety Report 12199261 (Version 1)
Quarter: 2016Q1

REPORT INFORMATION
  Report Type: Spontaneous
  Country: US (occurrence: None)
  Receive Date: 20160321
  Receipt Date: 20160321
  Transmission Date: 20160526
  Serious: Yes (Life-Threatening, Hospitalization)
  Sender: FDA-Public Use
  Company Number: None

PATIENT
  Age: 93 Year
  Sex: Female
  Weight: 53.5 kg

DRUGS (12)
  1. WARFARIN (JANTOVEN) [Concomitant]
  2. WARFARIN [Suspect]
     Active Substance: WARFARIN
     Indication: DEEP VEIN THROMBOSIS
     Route: 048
  3. COUMADIN [Concomitant]
     Active Substance: WARFARIN SODIUM
  4. NORVASC [Concomitant]
     Active Substance: AMLODIPINE BESYLATE
  5. CALCIUM CARBONATE-VITAMIN D (OYSTER SHELL CALCIUM/D) [Concomitant]
  6. VITAMIN D (ERGOCALCIFEROL) [Concomitant]
     Active Substance: ERGOCALCIFEROL
  7. ISOSORBIDE MONONITRATE (ISMO;MONOKET) [Concomitant]
  8. WARFARIN [Suspect]
     Active Substance: WARFARIN
     Indication: PULMONARY EMBOLISM
     Route: 048
  9. FOSAMAX [Concomitant]
     Active Substance: ALENDRONATE SODIUM
  10. SIMVASTATIN (ZOCOR) [Concomitant]
  11. LASIX [Concomitant]
     Active Substance: FUROSEMIDE
  12. CELEBREX [Concomitant]
     Active Substance: CELECOXIB

REACTIONS (9)
  - Terminal state [None]
  - Facial paralysis [None]
  - Encephalopathy [None]
  - Subdural haematoma [None]
  - International normalised ratio increased [None]
  - Hemiparesis [None]
  - Seizure [None]
  - Brain midline shift [None]
  - Aphasia [None]

NARRATIVE: CASE EVENT DATE: 20160114
